FAERS Safety Report 6780417-0 (Version None)
Quarter: 2010Q2

REPORT INFORMATION
  Report Type: 
  Country: None (occurrence: None)
  Receive Date: 20100620
  Receipt Date: 20100611
  Transmission Date: 20101027
  Serious: Yes (Hospitalization)
  Sender: FDA-Public Use
  Company Number: US-JNJFOC-20100502255

PATIENT
  Age: 65 Year
  Sex: Female
  Weight: 98.88 kg

DRUGS (2)
  1. CHILDREN'S TYLENOL SUSPENSION [Suspect]
     Route: 048
  2. CHILDREN'S TYLENOL SUSPENSION [Suspect]
     Indication: PAIN IN EXTREMITY
     Route: 048

REACTIONS (4)
  - APHASIA [None]
  - CONVULSION [None]
  - MYOCARDIAL INFARCTION [None]
  - PRODUCT QUALITY ISSUE [None]
